FAERS Safety Report 9458087 (Version 2)
Quarter: 2013Q3

REPORT INFORMATION
  Report Type: Report from Study
  Country: US (occurrence: US)
  Receive Date: 20130814
  Receipt Date: 20130910
  Transmission Date: 20140515
  Serious: Yes (Other)
  Sender: FDA-Public Use
  Company Number: PHHY2013US087405

PATIENT
  Age: 69 Year
  Sex: Female
  Weight: 58.96 kg

DRUGS (4)
  1. GILENYA [Suspect]
     Indication: MULTIPLE SCLEROSIS
     Dosage: 0.5 MG, QD
     Route: 048
     Dates: start: 20130618
  2. TUMS [Concomitant]
     Indication: NAUSEA
     Dosage: UNK UKN, UNK
  3. MYLANTA [Concomitant]
     Indication: NAUSEA
     Dosage: UNK UKN, UNK
  4. NEXIUM [Concomitant]
     Indication: GASTROOESOPHAGEAL REFLUX DISEASE
     Dosage: UNK UKN, UNK

REACTIONS (2)
  - Eye haemorrhage [Not Recovered/Not Resolved]
  - Vision blurred [Unknown]
